FAERS Safety Report 23421204 (Version 3)
Quarter: 2024Q1

REPORT INFORMATION
  Report Type: Report from Study
  Country: AU (occurrence: AU)
  Receive Date: 20240119
  Receipt Date: 20240216
  Transmission Date: 20240410
  Serious: Yes (Other)
  Sender: FDA-Public Use
  Company Number: AU-BAYER-2023A186454

PATIENT
  Age: 93 Year
  Sex: Female

DRUGS (8)
  1. EYLEA [Suspect]
     Active Substance: AFLIBERCEPT
     Indication: Neovascular age-related macular degeneration
     Dosage: UNK UNK, Q4WK, RIGHT EYE, SOLUTION FOR INJECTION, 40 MG/ML
     Route: 031
     Dates: start: 20220511, end: 20220511
  2. EYLEA [Suspect]
     Active Substance: AFLIBERCEPT
     Indication: Retinal pigment epitheliopathy
     Dosage: UNK,RIGHT EYE, SOLUTION FOR INJECTION, 40 MG/ML
     Route: 031
     Dates: start: 20220621, end: 20220621
  3. EYLEA [Suspect]
     Active Substance: AFLIBERCEPT
     Indication: Choroidal neovascularisation
     Dosage: UNK,RIGHT EYE, SOLUTION FOR INJECTION, 40 MG/ML
     Route: 031
     Dates: start: 20220726, end: 20220726
  4. EYLEA [Suspect]
     Active Substance: AFLIBERCEPT
     Dosage: UNK,RIGHT EYE, SOLUTION FOR INJECTION, 40 MG/ML
     Route: 031
     Dates: start: 20220913, end: 20220913
  5. EYLEA [Suspect]
     Active Substance: AFLIBERCEPT
     Dosage: UNK,RIGHT EYE, SOLUTION FOR INJECTION, 40 MG/ML
     Route: 031
     Dates: start: 20221027, end: 20221027
  6. EYLEA [Suspect]
     Active Substance: AFLIBERCEPT
     Dosage: UNK,RIGHT EYE, SOLUTION FOR INJECTION, 40 MG/ML
     Route: 031
     Dates: start: 20221213, end: 20221213
  7. EYLEA [Suspect]
     Active Substance: AFLIBERCEPT
     Dosage: UNK, SOLUTION FOR INJECTION, 40 MG/ML
     Route: 031
     Dates: start: 20230808, end: 20230808
  8. EYLEA [Suspect]
     Active Substance: AFLIBERCEPT
     Dosage: UNK, ONCE, SOLUTION FOR INJECTION, 40 MG/ML

REACTIONS (9)
  - Blindness unilateral [Recovered/Resolved]
  - Keratic precipitates [Recovered/Resolved]
  - Blindness unilateral [Not Recovered/Not Resolved]
  - Uveitis [Recovered/Resolved]
  - Uveitis [Recovered/Resolved]
  - Intraocular pressure increased [Recovered/Resolved]
  - Visual acuity reduced [Unknown]
  - Headache [Recovered/Resolved]
  - Pseudopapilloedema [Recovered/Resolved]

NARRATIVE: CASE EVENT DATE: 20230202
